FAERS Safety Report 4705784-0 (Version None)
Quarter: 2005Q2

REPORT INFORMATION
  Report Type: 
  Country: None (occurrence: None)
  Receive Date: 20050629
  Receipt Date: 20050616
  Transmission Date: 20051028
  Serious: Yes (Other)
  Sender: FDA-Public Use
  Company Number: GR-2005-011564

PATIENT
  Sex: 0

DRUGS (1)
  1. BETAFERON (INTERFERON BETA -1B) INJECTION, 250UG [Suspect]
     Dosage: UNK, SUBCUTANEOUS
     Route: 058

REACTIONS (1)
  - COAGULOPATHY [None]
